FAERS Safety Report 19145483 (Version 1)
Quarter: 2021Q2

REPORT INFORMATION
  Report Type: Spontaneous
  Country: US (occurrence: US)
  Receive Date: 20210416
  Receipt Date: 20210416
  Transmission Date: 20210717
  Serious: No
  Sender: FDA-Public Use
  Company Number: US-DRREDDYS-USA/USA/21/0133845

PATIENT
  Age: 75 Year
  Sex: Female
  Weight: 49.5 kg

DRUGS (1)
  1. TOBRAMYCIN INHALATION SOLUTION [Suspect]
     Active Substance: TOBRAMYCIN
     Indication: PSEUDOMONAS INFECTION
     Dosage: 1 VIAL TWICE DAILY FOR 7 DAYS
     Dates: start: 20210311, end: 20210318

REACTIONS (2)
  - Dysphonia [Unknown]
  - Product use in unapproved indication [Unknown]
